FAERS Safety Report 25401311 (Version 3)
Quarter: 2025Q3

REPORT INFORMATION
  Report Type: Spontaneous
  Country: US (occurrence: US)
  Receive Date: 20250605
  Receipt Date: 20250723
  Transmission Date: 20251020
  Serious: No
  Sender: BAYER HEALTHCARE PHARMACEUTICALS INC.
  Company Number: US-BAYER-2025A074538

PATIENT
  Age: 44 Year
  Sex: Female

DRUGS (4)
  1. ADEMPAS [Suspect]
     Active Substance: RIOCIGUAT
     Indication: Pulmonary arterial hypertension
     Dosage: 2.5 MG, TID
     Route: 048
     Dates: start: 202307
  2. AMBRISENTAN [Concomitant]
     Active Substance: AMBRISENTAN
     Indication: Pulmonary arterial hypertension
     Dosage: 10 MG, QD
     Route: 048
     Dates: start: 202411
  3. REMODULIN [Concomitant]
     Active Substance: TREPROSTINIL
     Indication: Pulmonary arterial hypertension
     Route: 058
     Dates: start: 202105
  4. WINREVAIR [Suspect]
     Active Substance: SOTATERCEPT-CSRK

REACTIONS (7)
  - Injection site bruising [None]
  - Nausea [Not Recovered/Not Resolved]
  - Vomiting [None]
  - Pain in jaw [None]
  - Pain in extremity [None]
  - Injection site pain [Not Recovered/Not Resolved]
  - Headache [Not Recovered/Not Resolved]
